FAERS Safety Report 9805197 (Version 3)
Quarter: 2014Q2

REPORT INFORMATION
  Report Type: Not Available
  Country: FR (occurrence: FR)
  Receive Date: 20140109
  Receipt Date: 20140416
  Transmission Date: 20141212
  Serious: Yes (Hospitalization)
  Sender: FDA-Public Use
  Company Number: FR-BEH-2013038325

PATIENT
  Age: 28 Year
  Sex: Female

DRUGS (4)
  1. PRIVIGEN [Suspect]
     Route: 042
     Dates: start: 20130828, end: 20130829
  2. PRIVIGEN [Suspect]
  3. PRIVIGEN [Suspect]
  4. CORTICOSTEROIDS [Concomitant]
     Dosage: 1 G/KG
     Dates: start: 20130827

REACTIONS (11)
  - Meningitis aseptic [Recovered/Resolved]
  - Haemolytic anaemia [Recovered/Resolved]
  - Nausea [Recovered/Resolved]
  - Vomiting [Recovered/Resolved]
  - Pyrexia [Recovered/Resolved]
  - Headache [Recovered/Resolved]
  - Platelet count increased [Recovered/Resolved]
  - Dysuria [Unknown]
  - Phonophobia [Unknown]
  - Photophobia [Unknown]
  - Pain [Unknown]
